FAERS Safety Report 16979607 (Version 2)
Quarter: 2019Q4

REPORT INFORMATION
  Report Type: Spontaneous
  Country: DE (occurrence: DE)
  Receive Date: 20191031
  Receipt Date: 20191113
  Transmission Date: 20200122
  Serious: Yes (Other)
  Sender: FDA-Public Use
  Company Number: DE-GILEAD-2019-0435482

PATIENT
  Age: 63 Year
  Sex: Male

DRUGS (11)
  1. SPIRONOLACTONE. [Concomitant]
     Active Substance: SPIRONOLACTONE
     Dosage: 25 MG
  2. BISOPROLOL [Concomitant]
     Active Substance: BISOPROLOL
  3. DEKRISTOL [Concomitant]
     Active Substance: CHOLECALCIFEROL
  4. FOLIC ACID. [Concomitant]
     Active Substance: FOLIC ACID
     Dosage: 5 MG
  5. RAMIPRIL. [Concomitant]
     Active Substance: RAMIPRIL
     Dosage: 2.5 MG
  6. CLEXANE [Concomitant]
     Active Substance: ENOXAPARIN SODIUM
  7. ACICLOVIR [Concomitant]
     Active Substance: ACYCLOVIR
     Dosage: 400 MG
  8. YESCARTA [Suspect]
     Active Substance: AXICABTAGENE CILOLEUCEL
     Indication: DIFFUSE LARGE B-CELL LYMPHOMA
     Dosage: UNK
     Route: 042
     Dates: start: 20190705, end: 20190705
  9. SUMMAVIT [VITAMINS NOS] [Concomitant]
  10. VITAMIN B1 [Concomitant]
     Active Substance: THIAMINE HYDROCHLORIDE
  11. ELIQUIS [Concomitant]
     Active Substance: APIXABAN

REACTIONS (1)
  - Diffuse large B-cell lymphoma [Unknown]
